FAERS Safety Report 13668869 (Version 2)
Quarter: 2017Q2

REPORT INFORMATION
  Report Type: Spontaneous
  Country: GB (occurrence: GB)
  Receive Date: 20170620
  Receipt Date: 20170626
  Transmission Date: 20170830
  Serious: Yes (Hospitalization, Other)
  Sender: FDA-Public Use
  Company Number: GB-PFIZER INC-2017266437

PATIENT
  Age: 49 Year
  Sex: Male

DRUGS (5)
  1. IBUPROFEN. [Suspect]
     Active Substance: IBUPROFEN
     Dosage: 6 G, (72 H)
     Route: 048
  2. IBUPROFEN. [Suspect]
     Active Substance: IBUPROFEN
     Dosage: 200 MG, 30 NUROFEN PLUS (IN THE 3 DAYS PRIOR TO ADMISSION)
  3. IBUPROFEN. [Suspect]
     Active Substance: IBUPROFEN
     Dosage: UNK, AT LEAST 24 TABLETS ON A NUMBER OF OCCASSIONS
  4. CODEINE PHOSPHATE [Suspect]
     Active Substance: CODEINE PHOSPHATE
     Dosage: 12.8 MG, UNK (30 NUROFEN PLUS), IN THE 3 DAYS PRIOR TO ADMISSION
  5. CODEINE PHOSPHATE [Suspect]
     Active Substance: CODEINE PHOSPHATE
     Dosage: UNK, AT LEAST 24 TABLETS ON A NUMBER OF OCCASIONS

REACTIONS (4)
  - Renal tubular acidosis [Unknown]
  - Hypokalaemia [Unknown]
  - Drug use disorder [Unknown]
  - Intentional overdose [Unknown]
